FAERS Safety Report 4328501-5 (Version None)
Quarter: 2004Q1

REPORT INFORMATION
  Report Type: 
  Country: None (occurrence: None)
  Receive Date: 20040331
  Receipt Date: 20040325
  Transmission Date: 20041129
  Serious: Yes (Hospitalization)
  Sender: FDA-Public Use
  Company Number: DE-MERCK-0403DEU00180

PATIENT
  Age: 76 Year
  Sex: Male

DRUGS (1)
  1. ZETIA [Suspect]
     Route: 048
     Dates: start: 20040315, end: 20040325

REACTIONS (2)
  - ANGINA PECTORIS [None]
  - MUSCLE CRAMP [None]
